FAERS Safety Report 16070640 (Version 1)
Quarter: 2019Q1

REPORT INFORMATION
  Report Type: Spontaneous
  Country: US (occurrence: US)
  Receive Date: 20190212
  Receipt Date: 20190212
  Transmission Date: 20190418
  Serious: Yes (Disabling)
  Sender: FDA-Public Use
  Company Number: None

PATIENT
  Age: 30 Year
  Sex: Female
  Weight: 103.5 kg

DRUGS (7)
  1. VISINE [Suspect]
     Active Substance: TETRAHYDROZOLINE HYDROCHLORIDE
     Indication: EYE DISORDER
     Dosage: ?          QUANTITY:1 GTT DROP(S);OTHER FREQUENCY:OCCASIONALLY;?
     Route: 047
     Dates: start: 20171123, end: 20180210
  2. CITALOPRAM [Concomitant]
     Active Substance: CITALOPRAM HYDROBROMIDE
  3. CARBINOXAMINE [Concomitant]
     Active Substance: CARBINOXAMINE
  4. SOFT SOAP [Suspect]
     Active Substance: SOAP
     Indication: INFECTION PROPHYLAXIS
     Route: 061
  5. WELLBUTRIN XL [Concomitant]
     Active Substance: BUPROPION HYDROCHLORIDE
  6. NATURE VALLEY PRENATAL [Concomitant]
  7. AZO YEAST [Concomitant]
     Active Substance: EUPATORIUM PERFOLIATUM FLOWERING TOP\HOMEOPATHICS\VISCUM ALBUM LEAF

REACTIONS (6)
  - Periorbital disorder [None]
  - Skin ulcer [None]
  - Skin fissures [None]
  - Blister [None]
  - Pruritus [None]
  - Eyelid pain [None]

NARRATIVE: CASE EVENT DATE: 20171201
